FAERS Safety Report 13418744 (Version 2)
Quarter: 2017Q2

REPORT INFORMATION
  Report Type: Spontaneous
  Country: NL (occurrence: NL)
  Receive Date: 20170406
  Receipt Date: 20170412
  Transmission Date: 20170830
  Serious: Yes (Death, Hospitalization)
  Sender: FDA-Public Use
  Company Number: PHHY2017NL045450

PATIENT
  Age: 73 Year
  Sex: Male

DRUGS (1)
  1. DIGOXIN. [Suspect]
     Active Substance: DIGOXIN
     Indication: CARDIAC FAILURE CHRONIC
     Dosage: 20 MG, UNK ((0.25 MG/KG))
     Route: 048

REACTIONS (6)
  - Ventricular fibrillation [Fatal]
  - Nausea [Fatal]
  - Vomiting [Fatal]
  - Bradycardia [Fatal]
  - Toxicity to various agents [Fatal]
  - Cardioactive drug level increased [Fatal]
